FAERS Safety Report 7402170-X (Version None)
Quarter: 2011Q2

REPORT INFORMATION
  Report Type: 
  Country: None (occurrence: None)
  Receive Date: 20110408
  Receipt Date: 20110314
  Transmission Date: 20111010
  Serious: No
  Sender: FDA-Public Use
  Company Number: US-B.I. PHARMACEUTICALS,INC./RIDGEFIELD-2011-BP-08127BP

PATIENT
  Sex: Female

DRUGS (6)
  1. LIPITOR [Concomitant]
     Indication: BLOOD CHOLESTEROL INCREASED
  2. XANAX [Concomitant]
     Indication: ANXIETY
  3. PRADAXA [Suspect]
     Indication: ATRIAL FIBRILLATION
     Dosage: 150 MG
     Route: 048
     Dates: start: 20110301
  4. METOPROLOL [Concomitant]
     Indication: HYPERTENSION
  5. LOPID [Concomitant]
     Indication: BLOOD CHOLESTEROL INCREASED
  6. AMLODIPINE [Concomitant]
     Indication: HYPERTENSION

REACTIONS (2)
  - OEDEMA PERIPHERAL [None]
  - GASTROOESOPHAGEAL REFLUX DISEASE [None]
